FAERS Safety Report 14491607 (Version 2)
Quarter: 2018Q1

REPORT INFORMATION
  Report Type: Spontaneous
  Country: US (occurrence: US)
  Receive Date: 20180206
  Receipt Date: 20180223
  Transmission Date: 20180509
  Serious: No
  Sender: FDA-Public Use
  Company Number: US-PFIZER INC-2018047862

PATIENT
  Age: 64 Year
  Sex: Male
  Weight: 97.52 kg

DRUGS (6)
  1. GABAPENTIN. [Suspect]
     Active Substance: GABAPENTIN
     Dosage: UNK
     Dates: start: 201712, end: 201801
  2. GABAPENTIN. [Suspect]
     Active Substance: GABAPENTIN
     Indication: NEUROPATHY PERIPHERAL
     Dosage: UNK
     Dates: start: 201711, end: 201711
  3. LASIX [Concomitant]
     Active Substance: FUROSEMIDE
     Indication: FLUID RETENTION
     Dosage: 40 MG, 1X/DAY
     Route: 048
  4. TOPROL XL [Concomitant]
     Active Substance: METOPROLOL SUCCINATE
     Indication: CARDIAC FAILURE
     Dosage: 1 DF, 1X/DAY [1 TABLET ONCE A DAY]
     Route: 048
  5. MENOMAX [Suspect]
     Active Substance: HERBALS\HUMULUS LUPULUS WHOLE
     Indication: NEUROPATHY PERIPHERAL
     Dosage: UNKNOWN
     Dates: start: 201712, end: 201801
  6. COREG [Concomitant]
     Active Substance: CARVEDILOL
     Indication: CARDIAC FAILURE
     Dosage: 2 DF, 2X/DAY [2 TABLETS TWICE A DAY]
     Route: 048

REACTIONS (7)
  - Irritability [Unknown]
  - Drug ineffective for unapproved indication [Unknown]
  - Bedridden [Unknown]
  - Drug effect incomplete [Unknown]
  - Peripheral coldness [Unknown]
  - Insomnia [Unknown]
  - Pain in extremity [Recovered/Resolved]

NARRATIVE: CASE EVENT DATE: 201711
